FAERS Safety Report 5088134-2 (Version None)
Quarter: 2006Q3

REPORT INFORMATION
  Report Type: 
  Country: None (occurrence: None)
  Receive Date: 20060821
  Receipt Date: 20060808
  Transmission Date: 20061208
  Serious: Yes (Life-Threatening)
  Sender: FDA-Public Use
  Company Number: HQWYE316410AUG06

PATIENT
  Sex: Male

DRUGS (1)
  1. EFFEXOR XR [Suspect]
     Indication: DEPRESSION
     Dosage: ^ 37.5/75 ^ MG CAPSULES DAILY, ORAL
     Route: 048
     Dates: start: 20060701, end: 20060101

REACTIONS (5)
  - DRUG WITHDRAWAL SYNDROME [None]
  - FORMICATION [None]
  - HALLUCINATION [None]
  - SELF-INJURIOUS IDEATION [None]
  - SUICIDAL IDEATION [None]
